FAERS Safety Report 4402189-7 (Version None)
Quarter: 2004Q3

REPORT INFORMATION
  Report Type: 
  Country: None (occurrence: None)
  Receive Date: 20040716
  Receipt Date: 20040711
  Transmission Date: 20050211
  Serious: Yes (Hospitalization)
  Sender: FDA-Public Use
  Company Number: TCI2004A02036

PATIENT
  Age: 59 Year
  Sex: Male

DRUGS (5)
  1. ACTOS [Suspect]
     Indication: DIABETES MELLITUS NON-INSULIN-DEPENDENT
     Dosage: 15 MG, PER ORAL
     Route: 048
     Dates: start: 20010717
  2. METFORMIN HCL [Suspect]
     Dosage: PER ORAL
     Route: 048
     Dates: start: 20031001
  3. PROBUCOL [Concomitant]
  4. ACARBOSE [Concomitant]
  5. GLYBURIDE [Concomitant]

REACTIONS (3)
  - ALANINE AMINOTRANSFERASE INCREASED [None]
  - ASPARTATE AMINOTRANSFERASE INCREASED [None]
  - BLOOD CREATINE PHOSPHOKINASE INCREASED [None]
